FAERS Safety Report 9143180 (Version 1)
Quarter: 2013Q1

REPORT INFORMATION
  Report Type: Spontaneous
  Country: US (occurrence: US)
  Receive Date: 20130306
  Receipt Date: 20130306
  Transmission Date: 20140127
  Serious: No
  Sender: FDA-Public Use
  Company Number: US-ENDO PHARMACEUTICALS INC.-OPER20110184

PATIENT
  Sex: Female

DRUGS (2)
  1. OPANA ER [Suspect]
     Indication: PAIN
     Dosage: UNK
     Route: 048
  2. METHADONE [Concomitant]
     Indication: PRODUCT USED FOR UNKNOWN INDICATION
     Dosage: UNK
     Route: 065

REACTIONS (1)
  - Drug screen positive [Unknown]
